FAERS Safety Report 6400860-9 (Version None)
Quarter: 2009Q4

REPORT INFORMATION
  Report Type: 
  Country: None (occurrence: None)
  Receive Date: 20091009
  Receipt Date: 20090114
  Transmission Date: 20100525
  Serious: Yes (Other)
  Sender: FDA-Public Use
  Company Number: 2008SP025196

PATIENT
  Age: 59 Year
  Sex: Male
  Weight: 80.2867 kg

DRUGS (6)
  1. TEMODAR [Suspect]
     Indication: DRUG USE FOR UNKNOWN INDICATION
     Dosage: 100 MG; TID; PO
     Route: 048
     Dates: start: 20081016
  2. KEPPRA [Concomitant]
  3. METOPROLOL [Concomitant]
  4. OMEPRAZOLE [Concomitant]
  5. DECADRON [Concomitant]
  6. TRIAMTERENE [Concomitant]

REACTIONS (2)
  - LEUKOPENIA [None]
  - PLATELET COUNT DECREASED [None]
